FAERS Safety Report 9145943 (Version 2)
Quarter: 2013Q1

REPORT INFORMATION
  Report Type: Spontaneous
  Country: CH (occurrence: CH)
  Receive Date: 20130307
  Receipt Date: 20130328
  Transmission Date: 20140127
  Serious: Yes (Hospitalization, Other)
  Sender: FDA-Public Use
  Company Number: CH-JNJFOC-20130216926

PATIENT
  Age: 88 Year
  Sex: Female
  Weight: 76 kg

DRUGS (10)
  1. XARELTO [Suspect]
     Indication: ATRIAL FIBRILLATION
     Route: 048
     Dates: start: 20130208, end: 20130211
  2. XARELTO [Suspect]
     Indication: CEREBROVASCULAR ACCIDENT PROPHYLAXIS
     Route: 048
     Dates: start: 20130208, end: 20130211
  3. CONCOR [Concomitant]
     Route: 065
  4. PANTOPRAZOLE [Concomitant]
     Route: 065
  5. CALCIMAGON [Concomitant]
     Route: 065
  6. OXYCONTIN [Concomitant]
     Route: 065
  7. MOVICOL [Concomitant]
     Route: 065
  8. OVESTIN [Concomitant]
     Route: 065
  9. DIPIPERON [Concomitant]
     Route: 065
  10. DIPIPERON [Concomitant]
     Route: 065

REACTIONS (2)
  - Cerebrovascular accident [Not Recovered/Not Resolved]
  - Wrong technique in drug usage process [Unknown]
